FAERS Safety Report 24439169 (Version 1)
Quarter: 2024Q4

REPORT INFORMATION
  Report Type: Spontaneous
  Country: US (occurrence: None)
  Receive Date: 20241014
  Receipt Date: 20241014
  Transmission Date: 20250115
  Serious: Yes (Other)
  Sender: Public
  Company Number: None

PATIENT
  Age: 54 Year
  Sex: Female
  Weight: 92.7 kg

DRUGS (4)
  1. PROCHLORPERAZINE [Suspect]
     Active Substance: PROCHLORPERAZINE
     Dates: start: 20241007, end: 20241007
  2. IBUPROFEN [Concomitant]
  3. ACETAMINOPHEN [Concomitant]
     Active Substance: ACETAMINOPHEN
  4. Women^s 50+ multivitamin [Concomitant]

REACTIONS (3)
  - Agitation [None]
  - Suicidal ideation [None]
  - Emotional distress [None]

NARRATIVE: CASE EVENT DATE: 20241007
